FAERS Safety Report 5923764-4 (Version None)
Quarter: 2008Q4

REPORT INFORMATION
  Report Type: 
  Country: None (occurrence: None)
  Receive Date: 20081015
  Receipt Date: 20080929
  Transmission Date: 20090506
  Serious: Yes (Hospitalization)
  Sender: FDA-Public Use
  Company Number: B0540944A

PATIENT
  Age: 29 Year
  Sex: Female

DRUGS (4)
  1. LAMIVUDINE [Suspect]
     Indication: HIV INFECTION
     Dosage: 150 MG / TWICE PER DAY / ORAL
     Route: 048
     Dates: start: 20061101, end: 20070101
  2. CO-TRIMOXAZOLE (FORMULATION UNKNOWN) (GENERIC) (SULFAMETHOXAZOLE/TRIME [Suspect]
     Indication: ANTIFUNGAL PROPHYLAXIS
     Dates: start: 20060201
  3. STAVUDINE [Concomitant]
  4. EFAVIRENZ [Concomitant]

REACTIONS (9)
  - APLASIA PURE RED CELL [None]
  - CARDIAC MURMUR [None]
  - GAMMA-GLUTAMYLTRANSFERASE INCREASED [None]
  - HEPATOMEGALY [None]
  - HYPOTENSION [None]
  - ORAL DISORDER [None]
  - PANCYTOPENIA [None]
  - SINUS TACHYCARDIA [None]
  - UROSEPSIS [None]
